FAERS Safety Report 8190287-4 (Version None)
Quarter: 2012Q1

REPORT INFORMATION
  Report Type: 
  Country: None (occurrence: None)
  Receive Date: 20120307
  Receipt Date: 20120224
  Transmission Date: 20120608
  Serious: Yes (Hospitalization)
  Sender: FDA-Public Use
  Company Number: JP-ELI_LILLY_AND_COMPANY-JP201202007753

PATIENT
  Age: 58 Year
  Sex: Female

DRUGS (10)
  1. EPLERENONE [Concomitant]
     Route: 048
  2. AMOXAPINE [Concomitant]
     Route: 048
  3. LASIX [Concomitant]
     Route: 048
  4. SELBEX [Concomitant]
     Route: 048
  5. ADCIRCA [Suspect]
     Indication: PULMONARY HYPERTENSION
     Dosage: 20 MG, QD
     Route: 048
     Dates: start: 20120221, end: 20120224
  6. WARFARIN SODIUM [Concomitant]
     Route: 048
  7. DEPAS [Concomitant]
  8. BERAPROST SODIUM [Concomitant]
     Dosage: UNK
     Route: 048
     Dates: start: 20110726
  9. MENDON [Concomitant]
     Route: 048
  10. LUDIOMIL                                /SCH/ [Concomitant]

REACTIONS (2)
  - RIGHT VENTRICULAR FAILURE [None]
  - OFF LABEL USE [None]
